FAERS Safety Report 9718852 (Version 3)
Quarter: 2014Q1

REPORT INFORMATION
  Report Type: Spontaneous
  Country: FR (occurrence: None)
  Receive Date: 20131126
  Receipt Date: 20140321
  Transmission Date: 20141002
  Serious: Yes (Other)
  Sender: FDA-Public Use
  Company Number: AXC-2013-000459

PATIENT
  Age: 25 Year
  Sex: Female

DRUGS (7)
  1. AVLOCARDYL [Concomitant]
  2. AMITRIPTYLINE HYDROCHLORIDE [Concomitant]
  3. PROFEMIGR (KETOPROFEN) [Concomitant]
  4. ZOMIGORO [Concomitant]
  5. PYLERA [Suspect]
     Indication: DUODENAL ULCER
     Route: 048
     Dates: start: 20130828, end: 201309
  6. PANTOPRAZOLE (PANTOPRAZOLE) [Concomitant]
  7. VOGALENE [Concomitant]

REACTIONS (14)
  - Migraine [None]
  - Vomiting [None]
  - Nausea [None]
  - Weight decreased [None]
  - Dizziness [None]
  - Fatigue [None]
  - Hepatic pain [None]
  - Constipation [None]
  - Amenorrhoea [None]
  - Food aversion [None]
  - Abdominal pain upper [None]
  - Hypotension [None]
  - Headache [None]
  - Diarrhoea [None]
